FAERS Safety Report 4748380-1 (Version None)
Quarter: 2005Q3

REPORT INFORMATION
  Report Type: 
  Country: None (occurrence: None)
  Receive Date: 20050815
  Receipt Date: 20050414
  Transmission Date: 20060218
  Serious: No
  Sender: FDA-Public Use
  Company Number: USA050495463

PATIENT
  Age: 45 Year
  Sex: Male

DRUGS (9)
  1. CIALIS [Suspect]
     Indication: ERECTILE DYSFUNCTION
     Dosage: 40 MG
     Dates: start: 20050408
  2. VALIUM [Concomitant]
  3. SOMA [Concomitant]
  4. UROXATRAL [Concomitant]
  5. ACTIQ [Concomitant]
  6. GABITRIL [Concomitant]
  7. BEXTRA [Concomitant]
  8. SANAFLEX [Concomitant]
  9. AMBIEN [Concomitant]

REACTIONS (4)
  - BACK PAIN [None]
  - INTENTIONAL MISUSE [None]
  - MOBILITY DECREASED [None]
  - PAIN IN EXTREMITY [None]
